FAERS Safety Report 5813625-3 (Version None)
Quarter: 2008Q3

REPORT INFORMATION
  Report Type: 
  Country: None (occurrence: None)
  Receive Date: 20080716
  Receipt Date: 20080716
  Transmission Date: 20090109
  Serious: Yes (Death)
  Sender: FDA-Public Use
  Company Number: None

PATIENT
  Age: 43 Year
  Sex: Female

DRUGS (1)
  1. BONTRIL [Suspect]
     Indication: WEIGHT CONTROL
     Dosage: STOPPED MED 1 WEEK PRIOR TO SURGERY

REACTIONS (6)
  - BRAIN DEATH [None]
  - CONVULSION [None]
  - JOINT ARTHROPLASTY [None]
  - NEUROLOGICAL SYMPTOM [None]
  - POST PROCEDURAL COMPLICATION [None]
  - PROCEDURAL HEADACHE [None]
